FAERS Safety Report 9041043 (Version 1)
Quarter: 2013Q1

REPORT INFORMATION
  Report Type: Report from Study
  Country: US (occurrence: US)
  Receive Date: 20130129
  Receipt Date: 20130129
  Transmission Date: 20140127
  Serious: Yes (Hospitalization)
  Sender: FDA-Public Use
  Company Number: US-ABBOTT-12P-163-0900774-00

PATIENT
  Age: 63 Year
  Sex: Female

DRUGS (20)
  1. HUMIRA 40 MG/0.8 ML PEN [Suspect]
     Indication: CROHN^S DISEASE
     Dates: start: 201110
  2. HUMIRA 40 MG/0.8 ML PEN [Suspect]
     Indication: COLITIS
  3. PLAVIX [Concomitant]
     Indication: TRANSIENT ISCHAEMIC ATTACK
  4. PLAVIX [Concomitant]
     Indication: CORONARY ARTERY OCCLUSION
  5. LIPITOR [Concomitant]
     Indication: BLOOD CHOLESTEROL INCREASED
  6. ZANTAC [Concomitant]
     Indication: OESOPHAGEAL ULCER
  7. ZANTAC [Concomitant]
     Indication: GASTRIC ULCER
  8. CARAFATE [Concomitant]
     Indication: ULCER
  9. CITALOPRAM [Concomitant]
     Indication: DEPRESSION
  10. CITALOPRAM [Concomitant]
     Indication: ANXIETY
  11. KLOR-CON [Concomitant]
     Indication: BLOOD POTASSIUM DECREASED
  12. LOMOTIL [Concomitant]
     Indication: DIARRHOEA
  13. XOPENEX [Concomitant]
     Indication: CHRONIC OBSTRUCTIVE PULMONARY DISEASE
     Dosage: TWICE A DAY BY NEBULIZER
  14. XOPENEX [Concomitant]
     Dosage: INHALER
  15. SIMBACORT [Concomitant]
     Indication: CHRONIC OBSTRUCTIVE PULMONARY DISEASE
     Dosage: 2-160/4.5 MG PUFFS TWICE A DAY
  16. SPIREA [Concomitant]
     Indication: CHRONIC OBSTRUCTIVE PULMONARY DISEASE
     Dosage: DAILY INHALER
  17. IMMODIUM [Concomitant]
     Indication: PRODUCT USED FOR UNKNOWN INDICATION
     Dosage: 5-6 TABLETS DAILY
  18. XOPENEX [Concomitant]
     Indication: PRODUCT USED FOR UNKNOWN INDICATION
     Dosage: INHALER AS NEEDED
  19. ADVAIR [Concomitant]
     Indication: CHRONIC OBSTRUCTIVE PULMONARY DISEASE
     Dosage: INHALER
  20. PREDNISONE [Concomitant]
     Indication: CHRONIC OBSTRUCTIVE PULMONARY DISEASE
     Dosage: 20 MG DAILY

REACTIONS (18)
  - Dyspnoea [Not Recovered/Not Resolved]
  - Diarrhoea [Not Recovered/Not Resolved]
  - Sinusitis [Not Recovered/Not Resolved]
  - Upper respiratory tract infection [Not Recovered/Not Resolved]
  - Nasopharyngitis [Recovering/Resolving]
  - Influenza [Recovering/Resolving]
  - Cough [Not Recovered/Not Resolved]
  - Respiratory tract congestion [Not Recovered/Not Resolved]
  - Vomiting [Recovering/Resolving]
  - Diarrhoea [Recovering/Resolving]
  - Sinusitis [Unknown]
  - Ear infection [Unknown]
  - Lower respiratory tract infection [Unknown]
  - Pyrexia [Not Recovered/Not Resolved]
  - Sinusitis [Not Recovered/Not Resolved]
  - Colitis [Unknown]
  - Wrong technique in drug usage process [Unknown]
  - Injection site haemorrhage [Recovered/Resolved]
